FAERS Safety Report 15357054 (Version 1)
Quarter: 2018Q3

REPORT INFORMATION
  Report Type: Spontaneous
  Country: CA (occurrence: US)
  Receive Date: 20180906
  Receipt Date: 20180906
  Transmission Date: 20181010
  Serious: No
  Sender: FDA-Public Use
  Company Number: CA-GLAXOSMITHKLINE-US2018161214

PATIENT
  Age: 35 Year
  Sex: Female
  Weight: 77.11 kg

DRUGS (3)
  1. OMEGA III [Concomitant]
     Indication: CARDIAC DISORDER
     Dosage: DOSAGE FORM: UNSPECIFIED, 2 TIMES PER DAY
     Route: 065
  2. NICORETTE [Suspect]
     Active Substance: NICOTINE
     Indication: SMOKING CESSATION THERAPY
     Dosage: 4 MG, UNK
     Route: 048
     Dates: start: 201705, end: 201705
  3. COQ10 [Concomitant]
     Active Substance: UBIDECARENONE
     Indication: CARDIAC DISORDER
     Dosage: DOSAGE FORM: UNSPECIFIED, ONCE PER DAY
     Route: 065

REACTIONS (1)
  - Dyspepsia [Recovered/Resolved]

NARRATIVE: CASE EVENT DATE: 201705
